FAERS Safety Report 5854570-7 (Version None)
Quarter: 2008Q3

REPORT INFORMATION
  Report Type: 
  Country: None (occurrence: None)
  Receive Date: 20080822
  Receipt Date: 20080812
  Transmission Date: 20090109
  Serious: Yes (Hospitalization)
  Sender: FDA-Public Use
  Company Number: NL-ABBOTT-08P-114-0470690-00

PATIENT
  Sex: Male
  Weight: 106 kg

DRUGS (6)
  1. HUMIRA [Suspect]
     Indication: ANKYLOSING SPONDYLITIS
     Route: 058
     Dates: start: 20080530, end: 20080723
  2. ACETYLSALICYLIC ACID SRT [Suspect]
     Indication: CORONARY ARTERY INSUFFICIENCY
     Route: 048
     Dates: start: 20080705
  3. CLOPIDOGREL [Suspect]
     Indication: CORONARY ARTERY INSUFFICIENCY
     Route: 048
     Dates: start: 20080705
  4. CLOPIDOGREL [Suspect]
     Indication: CORONARY ARTERIAL STENT INSERTION
  5. ATROVASTINE [Suspect]
     Indication: CORONARY ARTERY INSUFFICIENCY
     Route: 048
     Dates: start: 20080705
  6. ATROVASTINE [Suspect]
     Indication: CORONARY ARTERIAL STENT INSERTION

REACTIONS (1)
  - HAEMOLYTIC ANAEMIA [None]
